FAERS Safety Report 21433788 (Version 1)
Quarter: 2022Q4

REPORT INFORMATION
  Report Type: Spontaneous
  Country: NL (occurrence: NL)
  Receive Date: 20221010
  Receipt Date: 20221010
  Transmission Date: 20230113
  Serious: Yes (Life-Threatening)
  Sender: FDA-Public Use
  Company Number: NL-LRB-00831085

PATIENT
  Sex: Male
  Weight: 75 kg

DRUGS (1)
  1. TERBINAFINE [Suspect]
     Active Substance: TERBINAFINE
     Indication: Onychomycosis
     Dosage: 250 MILLIGRAM, ONCE A DAY (TRANSLATE BY VOICE 17 / 5,000 TRANSLATION RESULTS 1 X PER DAY 1 PIECE)
     Route: 065
     Dates: start: 20210601

REACTIONS (1)
  - Psychotic disorder [Recovering/Resolving]
